FAERS Safety Report 5340757-9 (Version None)
Quarter: 2007Q2

REPORT INFORMATION
  Report Type: 
  Country: None (occurrence: None)
  Receive Date: 20070531
  Receipt Date: 20070530
  Transmission Date: 20071010
  Serious: Yes (Hospitalization)
  Sender: FDA-Public Use
  Company Number: GB-SHR-GB-2006-015407

PATIENT
  Sex: Male

DRUGS (3)
  1. CAMPATH [Suspect]
     Dosage: UNK, UNK
     Dates: start: 20060508, end: 20060526
  2. FLUDARABINE PHOSPHATE [Suspect]
     Dates: start: 20051201, end: 20051201
  3. CYCLOPHOSPHAMIDE [Suspect]
     Dates: start: 20051201, end: 20051201

REACTIONS (2)
  - ALVEOLITIS ALLERGIC [None]
  - LOWER RESPIRATORY TRACT INFECTION [None]
